FAERS Safety Report 7455377-X (Version None)
Quarter: 2011Q2

REPORT INFORMATION
  Report Type: 
  Country: None (occurrence: None)
  Receive Date: 20110503
  Receipt Date: 20110420
  Transmission Date: 20111010
  Serious: Yes (Other)
  Sender: FDA-Public Use
  Company Number: JP-TYCO HEALTHCARE/MALLINCKRODT-T201100686

PATIENT
  Sex: Male
  Weight: 54.3 kg

DRUGS (11)
  1. THYRADIN S [Concomitant]
     Dosage: 100 ?G, QD
     Dates: start: 20080813
  2. ETODOLAC [Concomitant]
     Dosage: 400 MG, BID
     Dates: start: 20090218
  3. TAGAMET                            /00397401/ [Concomitant]
     Dosage: 800 MG, BID
     Dates: start: 20090218
  4. LOCOID                             /00028605/ [Concomitant]
     Dosage: A PROPER DOSE AS NEEDED
     Dates: start: 20101109
  5. TS 1 [Concomitant]
     Dosage: 4 CUP BID, DAILY X 2 WEEKS, STOP X 1 WEEK; REPEAT
     Dates: start: 20101104
  6. DECADRON [Concomitant]
     Dosage: 3.3 MG ONCE A WEEK, CONTINUE FOR 2 WEEKS, STOP FOR 1 WEEK
     Dates: start: 20101124
  7. LOPEMIN [Concomitant]
     Dosage: 2 MG, BID
     Dates: start: 20110115
  8. RAMELTEON [Concomitant]
     Dosage: 0.3 ONCE A WEEK, CONTINUE FOR 2 WEEKS, STOP FOR 1 WEEK
     Dates: start: 20101124
  9. GEMZAR [Concomitant]
     Dosage: 1200 MG ONCE A WEEK, CONTINUE FOR 2 WEEKS, STOP FOR 1 WEEK
     Dates: start: 20101124
  10. METHYCOBAL                         /00324901/ [Concomitant]
     Dosage: 1500 MG, TID
     Dates: start: 20110209
  11. METHADONE [Suspect]
     Indication: CANCER PAIN
     Dosage: 15 MG, TID
     Route: 048
     Dates: start: 20101102

REACTIONS (1)
  - METASTASES TO LIVER [None]
